FAERS Safety Report 13721441 (Version 1)
Quarter: 2017Q3

REPORT INFORMATION
  Report Type: Report from Study
  Country: IT (occurrence: IT)
  Receive Date: 20170706
  Receipt Date: 20170706
  Transmission Date: 20171127
  Serious: Yes (Hospitalization, Other)
  Sender: FDA-Public Use
  Company Number: IT-MYLANLABS-2017M1040148

PATIENT

DRUGS (1)
  1. MELOXICAM. [Suspect]
     Active Substance: MELOXICAM
     Indication: PROCEDURAL PAIN
     Dosage: 15 MG DAILY
     Route: 048
     Dates: start: 20170528, end: 20170607

REACTIONS (6)
  - Chromaturia [Unknown]
  - Transaminases increased [Unknown]
  - Cholestasis [Unknown]
  - Faeces pale [Unknown]
  - Asthenia [Unknown]
  - Jaundice [Unknown]

NARRATIVE: CASE EVENT DATE: 20170614
